FAERS Safety Report 10992343 (Version 6)
Quarter: 2016Q3

REPORT INFORMATION
  Report Type: Spontaneous
  Country: US (occurrence: US)
  Receive Date: 20150406
  Receipt Date: 20160823
  Transmission Date: 20161109
  Serious: Yes (Hospitalization, Other)
  Sender: FDA-Public Use
  Company Number: US-ACTELION-A-NJ2015-115646

PATIENT
  Age: 56 Year
  Sex: Female

DRUGS (3)
  1. RESTORIL [Concomitant]
     Active Substance: TEMAZEPAM
  2. LETAIRIS [Concomitant]
     Active Substance: AMBRISENTAN
  3. VELETRI [Suspect]
     Active Substance: EPOPROSTENOL
     Indication: PULMONARY HYPERTENSION
     Dosage: 31.89 NG/KG, PER MIN
     Route: 042
     Dates: start: 20140828

REACTIONS (12)
  - Haemoglobin decreased [Recovering/Resolving]
  - Transfusion [Unknown]
  - Biopsy liver [Unknown]
  - Joint swelling [Unknown]
  - Spleen disorder [Unknown]
  - Blood iron decreased [Recovering/Resolving]
  - Insomnia [Unknown]
  - Oedema peripheral [Unknown]
  - Haemolytic anaemia [Recovering/Resolving]
  - Red blood cell count decreased [Recovering/Resolving]
  - Dyspnoea exertional [Unknown]
  - Therapeutic embolisation [Unknown]
